FAERS Safety Report 9747465 (Version 1)
Quarter: 2013Q4

REPORT INFORMATION
  Report Type: Spontaneous
  Country: US (occurrence: US)
  Receive Date: 20131212
  Receipt Date: 20131212
  Transmission Date: 20140711
  Serious: No
  Sender: FDA-Public Use
  Company Number: US-009507513-1312USA002210

PATIENT
  Age: 51 Year
  Sex: Male

DRUGS (4)
  1. PEGINTRON [Suspect]
     Indication: HEPATITIS C
     Dosage: REDIPEN
     Dates: start: 201302
  2. PEGINTRON [Suspect]
     Dosage: REDIPEN
     Dates: start: 20131203
  3. REBETOL [Suspect]
     Indication: HEPATITIS C
     Dosage: UNK
     Route: 048
  4. VICTRELIS [Suspect]
     Indication: HEPATITIS C
     Dosage: UNK
     Route: 048
     Dates: end: 201308

REACTIONS (3)
  - Platelet count abnormal [Unknown]
  - Inappropriate schedule of drug administration [Unknown]
  - Underdose [Unknown]
